FAERS Safety Report 5921874-9 (Version None)
Quarter: 2008Q4

REPORT INFORMATION
  Report Type: 
  Country: None (occurrence: None)
  Receive Date: 20081017
  Receipt Date: 20081007
  Transmission Date: 20090506
  Serious: Yes (Other)
  Sender: FDA-Public Use
  Company Number: US-ROCHE-590117

PATIENT
  Age: 53 Year
  Sex: Male

DRUGS (4)
  1. CELLCEPT [Suspect]
     Indication: HEPATITIS C
     Route: 065
  2. RIBAVIRIN [Suspect]
     Indication: HEPATITIS C
     Route: 065
  3. PROCRIT [Suspect]
     Indication: ANAEMIA
     Route: 065
  4. PEG-INTERFERON ALFA 2B [Suspect]
     Indication: HEPATITIS C
     Route: 065

REACTIONS (1)
  - APLASIA PURE RED CELL [None]
